FAERS Safety Report 5135702-5 (Version None)
Quarter: 2006Q4

REPORT INFORMATION
  Report Type: 
  Country: None (occurrence: None)
  Receive Date: 20061024
  Receipt Date: 20061024
  Transmission Date: 20070319
  Serious: Yes (Other)
  Sender: FDA-Public Use
  Company Number: None

PATIENT
  Age: 42 Year
  Sex: Male

DRUGS (1)
  1. SERTRALINE [Suspect]
     Indication: MAJOR DEPRESSION
     Dosage: 200 MG QAM  PO
     Route: 048

REACTIONS (4)
  - DRUG INEFFECTIVE [None]
  - IRRITABILITY [None]
  - RESTLESSNESS [None]
  - THERAPEUTIC RESPONSE UNEXPECTED WITH DRUG SUBSTITUTION [None]
